FAERS Safety Report 24298857 (Version 1)
Quarter: 2024Q3

REPORT INFORMATION
  Report Type: Spontaneous
  Country: US (occurrence: None)
  Receive Date: 20240909
  Receipt Date: 20240909
  Transmission Date: 20241016
  Serious: Yes (Hospitalization)
  Sender: Public
  Company Number: None

PATIENT
  Sex: Female

DRUGS (6)
  1. HUMIRA [Suspect]
     Active Substance: ADALIMUMAB
     Indication: Hidradenitis
     Route: 058
     Dates: start: 20231101
  2. BOOSTRIX INJ [Concomitant]
  3. BOOSTRIX INJ [Concomitant]
  4. OSELTAMIVIR CAP [Concomitant]
  5. PROVIGIL [Concomitant]
     Active Substance: MODAFINIL
  6. SUNOSI [Concomitant]
     Active Substance: SOLRIAMFETOL

REACTIONS (14)
  - Hypotension [None]
  - Dizziness [None]
  - Loss of consciousness [None]
  - Fall [None]
  - Face injury [None]
  - Scar [None]
  - Tobacco user [None]
  - Substance use [None]
  - Depression [None]
  - Injection site pain [None]
  - Pain in extremity [None]
  - COVID-19 [None]
  - Thrombosis [None]
  - Vaccination complication [None]
